FAERS Safety Report 9385098 (Version 1)
Quarter: 2013Q3

REPORT INFORMATION
  Report Type: Spontaneous
  Country: GB (occurrence: None)
  Receive Date: 20130701
  Receipt Date: 20130701
  Transmission Date: 20140515
  Serious: Yes (Hospitalization)
  Sender: FDA-Public Use
  Company Number: GER/UKI/13/0030212

PATIENT
  Age: 57 Year
  Sex: Male

DRUGS (3)
  1. SILDENAFIL (SILDENAFIL) [Suspect]
     Indication: ERECTILE DYSFUNCTION
     Route: 048
  2. FEBUXOSTAT [Suspect]
     Indication: PROPHYLAXIS
     Route: 048
     Dates: start: 20110629
  3. OMEPRAZOLE (OMEPRAZOLE) [Concomitant]

REACTIONS (2)
  - Non-cardiac chest pain [None]
  - Syncope [None]
